FAERS Safety Report 6979476-1 (Version None)
Quarter: 2010Q3

REPORT INFORMATION
  Report Type: 
  Country: None (occurrence: None)
  Receive Date: 20100910
  Receipt Date: 20100910
  Transmission Date: 20110219
  Serious: No
  Sender: FDA-Public Use
  Company Number: None

PATIENT
  Sex: Male
  Weight: 87.0906 kg

DRUGS (1)
  1. TRAVATAN Z [Suspect]
     Indication: GLAUCOMA
     Dosage: 1 DROP EA EYE 2X DAILY
     Dates: start: 20100809, end: 20100817

REACTIONS (4)
  - NAUSEA [None]
  - PHOTOPHOBIA [None]
  - TENSION HEADACHE [None]
  - VISION BLURRED [None]
